FAERS Safety Report 19214893 (Version 1)
Quarter: 2021Q2

REPORT INFORMATION
  Report Type: Spontaneous
  Country: FR (occurrence: FR)
  Receive Date: 20210505
  Receipt Date: 20210505
  Transmission Date: 20210717
  Serious: Yes (Other)
  Sender: FDA-Public Use
  Company Number: FR-SUN PHARMACEUTICAL INDUSTRIES LTD-2021RR-294131

PATIENT
  Age: 25 Year
  Sex: Female

DRUGS (2)
  1. TRAMADOL. [Suspect]
     Active Substance: TRAMADOL
     Indication: PROCEDURAL PAIN
     Dosage: 1500 MILLIGRAM, DAILY, 1/DAY
     Route: 048
     Dates: start: 2014
  2. CODEINE [Concomitant]
     Active Substance: CODEINE
     Indication: PRODUCT USED FOR UNKNOWN INDICATION
     Dosage: UNK ()
     Route: 065
     Dates: start: 2014

REACTIONS (7)
  - Overdose [Unknown]
  - Intentional product misuse [Unknown]
  - Somnolence [Unknown]
  - Withdrawal syndrome [Unknown]
  - Epilepsy [Recovering/Resolving]
  - Maternal exposure during pregnancy [Unknown]
  - Drug dependence [Recovering/Resolving]
